FAERS Safety Report 19668607 (Version 2)
Quarter: 2021Q3

REPORT INFORMATION
  Report Type: Report from Study
  Country: US (occurrence: US)
  Receive Date: 20210806
  Receipt Date: 20210810
  Transmission Date: 20211014
  Serious: Yes (Death)
  Sender: FDA-Public Use
  Company Number: US-GLAXOSMITHKLINE-US2021GSK167105

PATIENT
  Age: 39 Year
  Sex: Male

DRUGS (4)
  1. DOSTARLIMAB [Suspect]
     Active Substance: DOSTARLIMAB
     Indication: NEUROENDOCRINE CARCINOMA
  2. NIRAPARIB [Suspect]
     Active Substance: NIRAPARIB
     Indication: SMALL CELL LUNG CANCER
     Dosage: 200 MG
  3. NIRAPARIB [Suspect]
     Active Substance: NIRAPARIB
     Indication: NEUROENDOCRINE CARCINOMA
  4. DOSTARLIMAB [Suspect]
     Active Substance: DOSTARLIMAB
     Indication: SMALL CELL LUNG CANCER
     Dosage: 500 MG

REACTIONS (1)
  - Cardiac arrest [Fatal]

NARRATIVE: CASE EVENT DATE: 20210526
